FAERS Safety Report 5404930-3 (Version None)
Quarter: 2007Q3

REPORT INFORMATION
  Report Type: 
  Country: None (occurrence: None)
  Receive Date: 20070801
  Receipt Date: 20070801
  Transmission Date: 20080115
  Serious: No
  Sender: FDA-Public Use
  Company Number: None

PATIENT
  Sex: Male
  Weight: 86.6 kg

DRUGS (1)
  1. CLOZAPINE [Suspect]
     Indication: SCHIZOPHRENIA
     Dosage: 200MG  BEDTIME PO
     Route: 048
     Dates: start: 20070711, end: 20070712

REACTIONS (4)
  - DIZZINESS [None]
  - DRY MOUTH [None]
  - PALPITATIONS [None]
  - SOMNOLENCE [None]
